FAERS Safety Report 24782484 (Version 1)
Quarter: 2024Q4

REPORT INFORMATION
  Report Type: Spontaneous
  Country: US (occurrence: US)
  Receive Date: 20241227
  Receipt Date: 20241227
  Transmission Date: 20250114
  Serious: Yes (Hospitalization)
  Sender: BAYER HEALTHCARE PHARMACEUTICALS INC.
  Company Number: US-BAYER-2024A178357

PATIENT
  Age: 51 Year
  Sex: Female

DRUGS (1)
  1. PRECOSE [Suspect]
     Active Substance: ACARBOSE
     Indication: Hypoglycaemia
     Dosage: 1 DF, TID
     Route: 048

REACTIONS (3)
  - Seizure [None]
  - Hypoglycaemia [None]
  - Product use in unapproved indication [None]
